FAERS Safety Report 9802923 (Version 1)
Quarter: 2014Q1

REPORT INFORMATION
  Report Type: Spontaneous
  Country: US (occurrence: US)
  Receive Date: 20140108
  Receipt Date: 20140108
  Transmission Date: 20141002
  Serious: No
  Sender: FDA-Public Use
  Company Number: US-009507513-1401USA002173

PATIENT
  Age: 67 Year
  Sex: Male

DRUGS (2)
  1. PRIMAXIN I.V. [Suspect]
     Indication: UROSEPSIS
     Dosage: 500 MG, QID
     Route: 042
     Dates: start: 20140102
  2. SOTALOL HYDROCHLORIDE [Concomitant]

REACTIONS (3)
  - Dysgeusia [Not Recovered/Not Resolved]
  - Nausea [Not Recovered/Not Resolved]
  - Diarrhoea [Not Recovered/Not Resolved]
